FAERS Safety Report 9321806 (Version 1)
Quarter: 2013Q2

REPORT INFORMATION
  Report Type: Spontaneous
  Country: US (occurrence: US)
  Receive Date: 20130531
  Receipt Date: 20130531
  Transmission Date: 20140414
  Serious: No
  Sender: FDA-Public Use
  Company Number: US-009507513-1305USA017559

PATIENT
  Age: 49 Year
  Sex: Male

DRUGS (3)
  1. VICTRELIS [Suspect]
     Indication: HEPATITIS C
     Dosage: 4 DF, TID
     Route: 048
  2. PEGINTRON [Suspect]
     Indication: HEPATITIS C
     Dosage: 80 MICROGRAM, QW
     Route: 058
  3. RIBASPHERE [Suspect]
     Indication: HEPATITIS C
     Dosage: UNK
     Route: 048

REACTIONS (9)
  - Pyrexia [Unknown]
  - Pruritus [Unknown]
  - Depression [Unknown]
  - Influenza like illness [Unknown]
  - Weight decreased [Unknown]
  - Back pain [Unknown]
  - White blood cell count decreased [Unknown]
  - Arthralgia [Unknown]
  - Red blood cell count decreased [Unknown]
